FAERS Safety Report 20350523 (Version 4)
Quarter: 2022Q1

REPORT INFORMATION
  Report Type: Spontaneous
  Country: US (occurrence: US)
  Receive Date: 20220119
  Receipt Date: 20220307
  Transmission Date: 20220424
  Serious: Yes (Hospitalization, Other)
  Sender: FDA-Public Use
  Company Number: US-PFIZER INC-202200028828

PATIENT
  Age: 22 Year
  Sex: Female
  Weight: 88.435 kg

DRUGS (1)
  1. HEPARIN SODIUM [Suspect]
     Active Substance: HEPARIN SODIUM
     Indication: Pulmonary embolism
     Dosage: UNK
     Dates: start: 196707, end: 1967

REACTIONS (17)
  - Drug hypersensitivity [Recovered/Resolved]
  - Near death experience [Recovered/Resolved]
  - Anaphylactic reaction [Recovered/Resolved]
  - Pleural effusion [Recovered/Resolved]
  - Viral pericarditis [Recovered/Resolved]
  - Pneumonia [Recovered/Resolved]
  - Transfusion [Unknown]
  - Thrombophlebitis [Recovered/Resolved]
  - Drug intolerance [Recovered/Resolved]
  - Urticaria [Not Recovered/Not Resolved]
  - Wheezing [Not Recovered/Not Resolved]
  - Nausea [Not Recovered/Not Resolved]
  - Vomiting [Recovered/Resolved]
  - Body temperature increased [Unknown]
  - Erythema [Unknown]
  - Rash [Unknown]
  - Dyspnoea [Unknown]

NARRATIVE: CASE EVENT DATE: 19670701
